FAERS Safety Report 18672453 (Version 1)
Quarter: 2020Q4

REPORT INFORMATION
  Report Type: Other
  Country: CA (occurrence: CA)
  Receive Date: 20201229
  Receipt Date: 20201229
  Transmission Date: 20210114
  Serious: Yes (Other)
  Sender: FDA-Public Use
  Company Number: CA-APOTEX-2020AP024730

PATIENT
  Age: 32 Year
  Sex: Female

DRUGS (3)
  1. LETROZOLE. [Suspect]
     Active Substance: LETROZOLE
     Indication: LABOUR INDUCTION
     Route: 065
  2. MAGNESIUM SULFATE. [Suspect]
     Active Substance: MAGNESIUM SULFATE
     Indication: PROPHYLAXIS
     Route: 065
  3. OXYTOCIN. [Suspect]
     Active Substance: OXYTOCIN
     Indication: LABOUR INDUCTION
     Dosage: UNK
     Route: 065

REACTIONS (16)
  - Blood creatinine increased [Recovered/Resolved]
  - Muscle disorder [Recovered/Resolved]
  - Alanine aminotransferase increased [Recovered/Resolved]
  - Facial asymmetry [Recovered/Resolved]
  - Hypoaesthesia [Recovered/Resolved]
  - Diplopia [Recovered/Resolved]
  - VIth nerve paralysis [Recovered/Resolved]
  - Blood alkaline phosphatase increased [Recovered/Resolved]
  - Hypertension [Recovered/Resolved]
  - Proteinuria [Recovered/Resolved]
  - Aspartate aminotransferase increased [Recovered/Resolved]
  - Gamma-glutamyltransferase increased [Recovered/Resolved]
  - Pre-eclampsia [Recovered/Resolved]
  - Off label use [Recovered/Resolved]
  - Acute kidney injury [Recovered/Resolved]
  - Facial paralysis [Recovered/Resolved]
